FAERS Safety Report 8296216-7 (Version None)
Quarter: 2012Q2

REPORT INFORMATION
  Report Type: 
  Country: None (occurrence: None)
  Receive Date: 20120418
  Receipt Date: 20120411
  Transmission Date: 20120825
  Serious: Yes (Hospitalization, Other)
  Sender: FDA-Public Use
  Company Number: US-ABBOTT-12P-163-0920251-00

PATIENT
  Sex: Female
  Weight: 77.18 kg

DRUGS (12)
  1. DIOVAN [Concomitant]
     Indication: HYPERTENSION
  2. FOSAMAX [Suspect]
     Indication: PRODUCT USED FOR UNKNOWN INDICATION
  3. PREDNISONE TAB [Suspect]
     Indication: RHEUMATOID ARTHRITIS
  4. RECLAST [Concomitant]
     Indication: BONE DISORDER
  5. LORTAB [Concomitant]
     Indication: PAIN
  6. HUMIRA [Suspect]
     Route: 058
     Dates: start: 20120101
  7. PRILOSEC [Concomitant]
     Indication: GASTROOESOPHAGEAL REFLUX DISEASE
  8. CALCIUM CARBONATE [Concomitant]
     Indication: MINERAL SUPPLEMENTATION
  9. HUMIRA [Suspect]
     Indication: RHEUMATOID ARTHRITIS
     Route: 058
     Dates: start: 20060101, end: 20090201
  10. COLONOSCOPY PREP DRINK [Suspect]
     Indication: COLONOSCOPY
     Dates: start: 20110701
  11. TEMAZEPAM [Concomitant]
     Indication: INSOMNIA
  12. NAPROXEN [Concomitant]
     Indication: RHEUMATOID ARTHRITIS
     Dosage: OFF

REACTIONS (19)
  - VOMITING [None]
  - MUSCLE SPASMS [None]
  - MALAISE [None]
  - ESCHERICHIA INFECTION [None]
  - HEADACHE [None]
  - HYPOGLYCAEMIA [None]
  - OSTEOPOROSIS [None]
  - DEVICE DISLOCATION [None]
  - CONFUSIONAL STATE [None]
  - NAUSEA [None]
  - FEMUR FRACTURE [None]
  - ABDOMINAL PAIN [None]
  - CONTUSION [None]
  - INJECTION SITE HAEMORRHAGE [None]
  - PSORIASIS [None]
  - HEART RATE DECREASED [None]
  - DEHYDRATION [None]
  - DIARRHOEA [None]
  - KIDNEY INFECTION [None]
